FAERS Safety Report 10515843 (Version 1)
Quarter: 2014Q4

REPORT INFORMATION
  Report Type: Spontaneous
  Country: US (occurrence: None)
  Receive Date: 20141001
  Receipt Date: 20141001
  Transmission Date: 20150528
  Serious: Yes (Other)
  Sender: FDA-Public Use
  Company Number: 2014000662

PATIENT
  Age: 37 Year
  Sex: Female

DRUGS (2)
  1. VIMPAT [Suspect]
     Active Substance: LACOSAMIDE
     Indication: SEIZURE
  2. VENLAFAXINE [Concomitant]
     Active Substance: VENLAFAXINE HYDROCHLORIDE

REACTIONS (4)
  - Crying [None]
  - Ear disorder [None]
  - Depression [None]
  - Seizure [None]

NARRATIVE: CASE EVENT DATE: 201112
